FAERS Safety Report 24441100 (Version 1)
Quarter: 2024Q4

REPORT INFORMATION
  Report Type: Spontaneous
  Country: US (occurrence: US)
  Receive Date: 20241016
  Receipt Date: 20241016
  Transmission Date: 20250114
  Serious: Yes (Hospitalization, Other)
  Sender: AMGEN
  Company Number: US-AMGEN-USASP2024200871

PATIENT
  Age: 64 Year
  Sex: Female

DRUGS (8)
  1. TRASTUZUMAB [Suspect]
     Active Substance: TRASTUZUMAB
     Indication: HER2 positive gastric cancer
     Dosage: 8 MILLIGRAM/KILOGRAM, LOADING DOSE
     Route: 065
  2. TRASTUZUMAB [Suspect]
     Active Substance: TRASTUZUMAB
     Indication: Oesophageal carcinoma
     Dosage: 8 MILLIGRAM/KILOGRAM, LOADING DOSE
     Route: 065
  3. FLUOROURACIL [Concomitant]
     Active Substance: FLUOROURACIL
     Indication: HER2 positive gastric cancer
     Dosage: 2400 MILLIGRAM/SQ. METER, Q2WK
     Route: 065
  4. FLUOROURACIL [Concomitant]
     Active Substance: FLUOROURACIL
     Indication: Oesophageal carcinoma
  5. OXALIPLATIN [Concomitant]
     Active Substance: OXALIPLATIN
     Indication: HER2 positive gastric cancer
     Dosage: 85 MILLIGRAM/SQ. METER, Q2WK
     Route: 065
  6. OXALIPLATIN [Concomitant]
     Active Substance: OXALIPLATIN
     Indication: Oesophageal carcinoma
  7. PEMBROLIZUMAB [Concomitant]
     Active Substance: PEMBROLIZUMAB
     Indication: HER2 positive gastric cancer
     Dosage: 200 MILLIGRAM, Q3WK
     Route: 065
  8. PEMBROLIZUMAB [Concomitant]
     Active Substance: PEMBROLIZUMAB
     Indication: Oesophageal carcinoma

REACTIONS (2)
  - Vogt-Koyanagi-Harada disease [Unknown]
  - Neuropathy peripheral [Unknown]
